FAERS Safety Report 6648939-0 (Version None)
Quarter: 2010Q1

REPORT INFORMATION
  Report Type: 
  Country: None (occurrence: None)
  Receive Date: 20100324
  Receipt Date: 20100319
  Transmission Date: 20100710
  Serious: Yes (Death)
  Sender: FDA-Public Use
  Company Number: US-SANOFI-AVENTIS-2010SA013199

PATIENT
  Sex: Male

DRUGS (2)
  1. PLAVIX [Suspect]
     Route: 048
     Dates: start: 20020601, end: 20020903
  2. ASPIRIN [Concomitant]
     Dates: end: 20020601

REACTIONS (4)
  - CARDIAC FAILURE [None]
  - COUGH [None]
  - DYSPNOEA [None]
  - MYOCARDIAL INFARCTION [None]
